FAERS Safety Report 9998934 (Version 1)
Quarter: 2014Q1

REPORT INFORMATION
  Report Type: Spontaneous
  Country: US (occurrence: None)
  Receive Date: 20140311
  Receipt Date: 20140311
  Transmission Date: 20141002
  Serious: Yes (Death, Hospitalization)
  Sender: FDA-Public Use
  Company Number: None

PATIENT
  Age: 55 Year
  Sex: Male
  Weight: 48.7 kg

DRUGS (16)
  1. 5-FLUOROURACIL (5-FU) [Suspect]
     Dates: end: 20111122
  2. BEVACIZUMAB [Suspect]
     Dates: end: 20111122
  3. IRINOTECAN [Suspect]
     Dates: end: 20111122
  4. LEUCOVORIN CALCIUM [Suspect]
  5. BETAMETHASONE [Concomitant]
  6. MS CONTIN [Concomitant]
  7. PRINCESS MARGARET HOSP. MOUTHWASH [Concomitant]
  8. COLACE [Concomitant]
  9. DECADRON [Concomitant]
  10. FENTANYL PATCH [Concomitant]
  11. GABEPENTIN [Concomitant]
  12. GRANISETRON [Concomitant]
  13. LACTULOSE [Concomitant]
  14. SENOKOT [Concomitant]
  15. STATEX [Concomitant]
  16. STEMETIL [Concomitant]

REACTIONS (3)
  - Hypoglycaemia [None]
  - Abdominal pain lower [None]
  - General physical health deterioration [None]
